FAERS Safety Report 19424482 (Version 3)
Quarter: 2025Q1

REPORT INFORMATION
  Report Type: Spontaneous
  Country: US (occurrence: US)
  Receive Date: 20210616
  Receipt Date: 20250114
  Transmission Date: 20250409
  Serious: No
  Sender: SK LIFE SCIENCE
  Company Number: US-SK LIFE SCIENCE, INC-SKPVG-2021-000358

PATIENT

DRUGS (30)
  1. XCOPRI [Suspect]
     Active Substance: CENOBAMATE
     Indication: Epilepsy
     Route: 048
     Dates: start: 20201230
  2. XCOPRI [Suspect]
     Active Substance: CENOBAMATE
     Indication: Seizure
     Dosage: 100 MILLIGRAM, QD NIGHTLY
     Route: 048
     Dates: start: 202101
  3. XCOPRI [Suspect]
     Active Substance: CENOBAMATE
     Dosage: 150 MILLIGRAM, QD, DOSE WAS INCREASED BY 50 MG
     Route: 048
  4. XCOPRI [Suspect]
     Active Substance: CENOBAMATE
     Dosage: 150 MILLIGRAM, QHS, NIGHTLY.
     Route: 048
  5. XCOPRI [Suspect]
     Active Substance: CENOBAMATE
     Dosage: 200 MILLIGRAM, QHS
     Route: 048
  6. XCOPRI [Suspect]
     Active Substance: CENOBAMATE
     Dosage: 400 MILLIGRAM, QD (TAKEN FROM 200 MG BOTTLE)
     Route: 048
  7. XCOPRI [Suspect]
     Active Substance: CENOBAMATE
     Dosage: 200 MILLIGRAM, QD
     Route: 048
  8. XCOPRI [Suspect]
     Active Substance: CENOBAMATE
     Dosage: 150 MILLIGRAM, QD
     Route: 048
  9. XCOPRI [Suspect]
     Active Substance: CENOBAMATE
     Dosage: 350 MILLIGRAM, QD (200MG AND 150MG IN THE EVENING AROUND 6:00 (AROUND DINNERTIME))
     Route: 048
  10. XCOPRI [Suspect]
     Active Substance: CENOBAMATE
     Dosage: 350MG ONCE DAILY AT 6PM IN THE EVENING
     Route: 048
  11. XCOPRI [Suspect]
     Active Substance: CENOBAMATE
     Dosage: 350MG ONCE DAILY AT 6PM IN THE EVENING
     Route: 048
  12. XCOPRI [Suspect]
     Active Substance: CENOBAMATE
     Dosage: ONE 200 MG TABLET AND ONE 150 MG TABLET TOGETHER TO EQUAL 350 MG ONCE DAILY AT 6:00 IN THE EVENING
     Route: 048
  13. BRIVIACT [Suspect]
     Active Substance: BRIVARACETAM
     Indication: Epilepsy
     Dosage: 100 MILLIGRAM, QD, EVERY MORNING, 1 TABLET
     Route: 048
  14. BRIVIACT [Suspect]
     Active Substance: BRIVARACETAM
     Dosage: 150 MILLIGRAM, QHS, 1.5 TABLET
     Route: 048
  15. BRIVIACT [Suspect]
     Active Substance: BRIVARACETAM
     Dosage: 100 MG TWICE DAILY, MORNING AND EVENING
     Route: 048
  16. NEURONTIN [Suspect]
     Active Substance: GABAPENTIN
     Indication: Seizure
     Dosage: 300 MILLIGRAM, QD, 1 CAPSULE AT MORNING
     Route: 048
  17. NEURONTIN [Suspect]
     Active Substance: GABAPENTIN
     Dosage: 600 MILLIGRAM, QHS,  2 CAPSULES AT NIGHT
     Route: 048
  18. NAPROSYN [Suspect]
     Active Substance: NAPROXEN
     Indication: Pain
     Dosage: 500 MILLIGRAM, BID, AS NEEDED
     Route: 048
  19. CYMBALTA [Suspect]
     Active Substance: DULOXETINE HYDROCHLORIDE
     Indication: Insomnia
     Dosage: 30 MILLIGRAM, QHS, DELAYED RELEASE CAPSULE
     Route: 048
  20. CYMBALTA [Suspect]
     Active Substance: DULOXETINE HYDROCHLORIDE
     Indication: Anxiety
  21. SYNTHROID [Suspect]
     Active Substance: LEVOTHYROXINE SODIUM
     Indication: Product used for unknown indication
     Dosage: 25 MICROGRAM, QD, 1 TABLET IN THE MORNING ON AN EMPTY STOMACH
     Route: 048
  22. REMERON [Suspect]
     Active Substance: MIRTAZAPINE
     Indication: Product used for unknown indication
     Dosage: 30 MILLIGRAM, QHS, TABLET
     Route: 048
  23. CENTRUM                            /02217401/ [Concomitant]
     Indication: Product used for unknown indication
     Route: 048
  24. COD LIVER OIL [Concomitant]
     Active Substance: COD LIVER OIL
     Indication: Product used for unknown indication
     Route: 048
  25. GLUCOSAMINE + CHONDROITIN          /01430901/ [Concomitant]
     Indication: Product used for unknown indication
     Route: 048
  26. MELATONIN                          /07129401/ [Concomitant]
     Indication: Product used for unknown indication
     Dosage: 5 MILLIGRAM, QHS
     Route: 048
  27. BUSPAR [Concomitant]
     Active Substance: BUSPIRONE HYDROCHLORIDE
     Indication: Insomnia
     Route: 065
  28. BUSPAR [Concomitant]
     Active Substance: BUSPIRONE HYDROCHLORIDE
     Indication: Anxiety
  29. QUETIAPINE [Concomitant]
     Active Substance: QUETIAPINE
     Indication: Insomnia
     Route: 065
  30. QUETIAPINE [Concomitant]
     Active Substance: QUETIAPINE
     Indication: Anxiety

REACTIONS (28)
  - Bradykinesia [Unknown]
  - Dysstasia [Unknown]
  - Aura [Unknown]
  - Dry skin [Not Recovered/Not Resolved]
  - Skin burning sensation [Not Recovered/Not Resolved]
  - Pain in extremity [Not Recovered/Not Resolved]
  - Musculoskeletal pain [Not Recovered/Not Resolved]
  - Dysstasia [Recovered/Resolved]
  - Musculoskeletal stiffness [Recovered/Resolved]
  - Burning sensation [Not Recovered/Not Resolved]
  - Visual field defect [Not Recovered/Not Resolved]
  - Product dose omission issue [Recovered/Resolved]
  - Seizure [Recovered/Resolved]
  - Product packaging difficult to open [Unknown]
  - Fall [Recovered/Resolved]
  - Seizure [Recovered/Resolved]
  - Insomnia [Not Recovered/Not Resolved]
  - Feeling drunk [Unknown]
  - Confusional state [Unknown]
  - Disturbance in attention [Recovered/Resolved]
  - Back pain [Recovered/Resolved]
  - Dizziness [Recovered/Resolved]
  - Gait disturbance [Recovered/Resolved]
  - Somnolence [Not Recovered/Not Resolved]
  - Memory impairment [Not Recovered/Not Resolved]
  - Dizziness [Not Recovered/Not Resolved]
  - Somnolence [Not Recovered/Not Resolved]
  - Disturbance in attention [Not Recovered/Not Resolved]

NARRATIVE: CASE EVENT DATE: 20201220
